FAERS Safety Report 13298501 (Version 1)
Quarter: 2017Q1

REPORT INFORMATION
  Report Type: Spontaneous
  Country: DE (occurrence: DE)
  Receive Date: 20170306
  Receipt Date: 20170306
  Transmission Date: 20170428
  Serious: Yes (Other)
  Sender: FDA-Public Use
  Company Number: DE-MYLANLABS-2017M1013299

PATIENT

DRUGS (3)
  1. GEFITINIB [Suspect]
     Active Substance: GEFITINIB
     Indication: METASTASES TO LUNG
     Route: 048
  2. CISPLATIN. [Suspect]
     Active Substance: CISPLATIN
     Indication: METASTASES TO LUNG
     Dosage: 70 MG/M2, ON DAY 1 OF THE CYCLE, 6 CYCLES IN TOTAL
     Route: 065
     Dates: start: 20050726, end: 20051116
  3. GEMCITABINE [Suspect]
     Active Substance: GEMCITABINE\GEMCITABINE HYDROCHLORIDE
     Indication: METASTASES TO LUNG
     Dosage: 1250 MG/M2, ON DAY 1 AND DAY 8 OF THE CYCLE, 6 CYCLES IN TOTAL
     Route: 065
     Dates: start: 20050726, end: 20051116

REACTIONS (5)
  - Discomfort [Unknown]
  - Nausea [Unknown]
  - Rash [Unknown]
  - Leukopenia [Unknown]
  - Dyspnoea exertional [Unknown]
